FAERS Safety Report 7892847-4 (Version None)
Quarter: 2011Q4

REPORT INFORMATION
  Report Type: 
  Country: None (occurrence: None)
  Receive Date: 20111104
  Receipt Date: 20111026
  Transmission Date: 20120403
  Serious: Yes (Hospitalization)
  Sender: FDA-Public Use
  Company Number: FR-BRISTOL-MYERS SQUIBB COMPANY-16203358

PATIENT
  Age: 79 Year
  Sex: Female

DRUGS (2)
  1. IRBESARTAN [Suspect]
     Indication: HYPERTENSION
     Route: 048
     Dates: start: 20100512, end: 20100717
  2. ALDALIX [Suspect]
     Indication: HYPERTENSION
     Route: 048
     Dates: end: 20100717

REACTIONS (2)
  - RENAL FAILURE ACUTE [None]
  - PYELONEPHRITIS [None]
